FAERS Safety Report 7261384-2 (Version None)
Quarter: 2011Q1

REPORT INFORMATION
  Report Type: 
  Country: None (occurrence: None)
  Receive Date: 20110130
  Receipt Date: 20101018
  Transmission Date: 20110831
  Serious: No
  Sender: FDA-Public Use
  Company Number: US-ABBOTT-10P-163-0680230-00

PATIENT
  Sex: Female
  Weight: 48.124 kg

DRUGS (1)
  1. HUMIRA [Suspect]
     Indication: CROHN'S DISEASE
     Dates: start: 20101015, end: 20101015

REACTIONS (4)
  - MYALGIA [None]
  - ILL-DEFINED DISORDER [None]
  - SKIN DISCOLOURATION [None]
  - ABDOMINAL PAIN [None]
